FAERS Safety Report 11951828 (Version 2)
Quarter: 2016Q1

REPORT INFORMATION
  Report Type: Spontaneous
  Country: GB (occurrence: GB)
  Receive Date: 20160126
  Receipt Date: 20160216
  Transmission Date: 20160526
  Serious: Yes (Other)
  Sender: FDA-Public Use
  Company Number: PHHY2016GB007129

PATIENT
  Sex: Female

DRUGS (1)
  1. NYSTATIN SANDOZ [Suspect]
     Active Substance: NYSTATIN
     Indication: GINGIVITIS
     Dosage: UNK, QD
     Route: 048
     Dates: start: 20151117, end: 20160119

REACTIONS (1)
  - Hepatic enzyme increased [Unknown]
